FAERS Safety Report 13840158 (Version 1)
Quarter: 2017Q3

REPORT INFORMATION
  Report Type: Spontaneous
  Country: US (occurrence: US)
  Receive Date: 20170807
  Receipt Date: 20170807
  Transmission Date: 20171127
  Serious: Yes (Disabling)
  Sender: FDA-Public Use
  Company Number: None

PATIENT
  Sex: Female
  Weight: 78.75 kg

DRUGS (22)
  1. PACIFIC YE TREE TIPS [Concomitant]
  2. CHEMOTHEAPY [Concomitant]
     Active Substance: UNSPECIFIED INGREDIENT
  3. ZOFRAN ODT [Concomitant]
     Active Substance: ONDANSETRON HYDROCHLORIDE
  4. COQ10 [Concomitant]
     Active Substance: UBIDECARENONE
  5. CYTOXIN [Concomitant]
     Active Substance: CYCLOPHOSPHAMIDE
  6. COMPAZINE [Concomitant]
     Active Substance: PROCHLORPERAZINE MALEATE
  7. IRON [Concomitant]
     Active Substance: IRON
  8. DHEA [Concomitant]
     Active Substance: PRASTERONE
  9. VITAMIN D3 [Concomitant]
     Active Substance: CHOLECALCIFEROL
  10. LEVAQUIN [Suspect]
     Active Substance: LEVOFLOXACIN
     Indication: INFECTION PROPHYLAXIS
     Dosage: ?          QUANTITY:1 TABLET(S);?
     Route: 048
     Dates: start: 20170630, end: 20170707
  11. TUMERIC [Concomitant]
     Active Substance: HERBALS\TURMERIC
  12. FLAX OIL [Concomitant]
  13. WOMENS^ MULTIVITAMIN [Concomitant]
  14. GINKO LEAF [Concomitant]
  15. HAWTHORN BERRY EXTRACT [Concomitant]
     Active Substance: CRATAEGUS DOUGLASII FRUIT
  16. GREEK YOGURT [Concomitant]
  17. TAXOL [Concomitant]
     Active Substance: PACLITAXEL
  18. KOREAN GINSENG /01384001/ [Concomitant]
     Active Substance: ASIAN GINSENG
  19. ADRIAMYCIN [Concomitant]
     Active Substance: DOXORUBICIN HYDROCHLORIDE
  20. GOLDENSEAL [Concomitant]
     Active Substance: HERBALS\HOMEOPATHICS\GOLDENSEAL
  21. VITAMIN B COMPLEX [Concomitant]
     Active Substance: CYANOCOBALAMIN\DEXPANTHENOL\NIACINAMIDE\PYRIDOXINE HYDROCHLORIDE\RIBOFLAVIN 5^-PHOSPHATE SODIUM\THIAMINE HYDROCHLORIDE\VITAMIN B COMPLEX
  22. VITAMIN C [Concomitant]
     Active Substance: ASCORBIC ACID

REACTIONS (1)
  - Ligament sprain [None]

NARRATIVE: CASE EVENT DATE: 20170630
